FAERS Safety Report 5158168-8 (Version None)
Quarter: 2006Q4

REPORT INFORMATION
  Report Type: 
  Country: None (occurrence: None)
  Receive Date: 20061120
  Receipt Date: 20061120
  Transmission Date: 20070319
  Serious: Yes (Hospitalization, Other)
  Sender: FDA-Public Use
  Company Number: None

PATIENT
  Age: 28 Year
  Sex: Female
  Weight: 60.3284 kg

DRUGS (2)
  1. YASMIN [Suspect]
     Indication: ACNE
     Dosage: 0.3 MG ONCE DAILY
     Dates: start: 20050311, end: 20060930
  2. YASMIN [Suspect]
     Indication: ORAL CONTRACEPTION
     Dosage: 0.3 MG ONCE DAILY
     Dates: start: 20050311, end: 20060930

REACTIONS (10)
  - ANXIETY [None]
  - CHEST PAIN [None]
  - CYSTITIS [None]
  - DEPRESSION [None]
  - FUNGAL INFECTION [None]
  - MIGRAINE [None]
  - MUSCLE SPASMS [None]
  - PALPITATIONS [None]
  - PANIC ATTACK [None]
  - SUICIDAL IDEATION [None]
